FAERS Safety Report 14954328 (Version 1)
Quarter: 2018Q2

REPORT INFORMATION
  Report Type: Spontaneous
  Country: US (occurrence: US)
  Receive Date: 20180509
  Receipt Date: 20180509
  Transmission Date: 20180711
  Serious: Yes (Hospitalization, Disabling)
  Sender: FDA-Public Use
  Company Number: None

PATIENT
  Age: 34 Year
  Sex: Female
  Weight: 99.79 kg

DRUGS (3)
  1. PARAGARD T 380A [Suspect]
     Active Substance: COPPER
     Dates: start: 200902, end: 201803
  2. MULTIVITAMIN [Concomitant]
     Active Substance: VITAMINS
  3. DOXYCYCLINE. [Concomitant]
     Active Substance: DOXYCYCLINE

REACTIONS (7)
  - Discharge [None]
  - Device related infection [None]
  - Sensory disturbance [None]
  - Menorrhagia [None]
  - Pain [None]
  - Feeling hot [None]
  - Cyst [None]

NARRATIVE: CASE EVENT DATE: 20180311
